FAERS Safety Report 7796172-1 (Version None)
Quarter: 2011Q4

REPORT INFORMATION
  Report Type: 
  Country: None (occurrence: None)
  Receive Date: 20111004
  Receipt Date: 20110920
  Transmission Date: 20120403
  Serious: Yes (Other)
  Sender: FDA-Public Use
  Company Number: IT-BAYER-2011-088423

PATIENT
  Age: 32 Year
  Sex: Female

DRUGS (8)
  1. ADRIAMYCIN PFS [Suspect]
     Indication: HODGKIN'S DISEASE
     Dosage: 6 COURSES
  2. MECHLORETHAMINE [Suspect]
     Indication: HODGKIN'S DISEASE
     Dosage: 6 COURSES
  3. BLEOMYCIN SULFATE [Suspect]
     Indication: HODGKIN'S DISEASE
     Dosage: 6 COURSES
  4. PREDNISONE [Suspect]
     Indication: HODGKIN'S DISEASE
     Dosage: 6 COURSES
  5. PROCARBAZINE HYDROCHLORIDE [Suspect]
     Indication: HODGKIN'S DISEASE
     Dosage: 6 COURSES
  6. ONCOVIN [Suspect]
     Indication: HODGKIN'S DISEASE
     Dosage: 6 COURSES
  7. DACARBAZINE [Suspect]
     Indication: HODGKIN'S DISEASE
     Dosage: 6 COURSES
  8. VINBLASTINE SULFATE [Suspect]
     Indication: HODGKIN'S DISEASE
     Dosage: 6 COURSES

REACTIONS (1)
  - BARRETT'S OESOPHAGUS [None]
